FAERS Safety Report 4762773-8 (Version None)
Quarter: 2005Q3

REPORT INFORMATION
  Report Type: 
  Country: None (occurrence: None)
  Receive Date: 20050907
  Receipt Date: 20050427
  Transmission Date: 20060218
  Serious: Yes (Hospitalization, Disabling)
  Sender: FDA-Public Use
  Company Number: US-MERCK-0505USA00265

PATIENT
  Age: 52 Year
  Sex: Male
  Weight: 97 kg

DRUGS (4)
  1. VIOXX [Suspect]
     Indication: SPONDYLITIS
     Route: 048
     Dates: start: 20020101, end: 20030601
  2. VIOXX [Suspect]
     Indication: ARTHRALGIA
     Route: 048
     Dates: start: 20020101, end: 20030601
  3. IBUPROFEN [Concomitant]
     Route: 065
  4. GLUCOPHAGE [Concomitant]
     Route: 065

REACTIONS (8)
  - BLOOD CHOLESTEROL INCREASED [None]
  - CEREBROVASCULAR ACCIDENT [None]
  - CONVULSION [None]
  - DEPRESSION [None]
  - DIABETES MELLITUS [None]
  - DYSPEPSIA [None]
  - HYPERTENSION [None]
  - POLYTRAUMATISM [None]
